FAERS Safety Report 8189997-4 (Version None)
Quarter: 2012Q1

REPORT INFORMATION
  Report Type: 
  Country: None (occurrence: None)
  Receive Date: 20120307
  Receipt Date: 20120227
  Transmission Date: 20120608
  Serious: Yes (Hospitalization)
  Sender: FDA-Public Use
  Company Number: HK-SANOFI-AVENTIS-2012SA013545

PATIENT
  Age: 59 Year
  Sex: Male

DRUGS (6)
  1. ISONIAZID [Suspect]
     Indication: PULMONARY TUBERCULOSIS
     Route: 065
  2. ETHAMBUTOL HYDROCHLORIDE [Suspect]
     Indication: PULMONARY TUBERCULOSIS
     Route: 065
  3. ETHAMBUTOL HYDROCHLORIDE [Suspect]
     Route: 065
  4. RIFAMPICIN [Suspect]
     Indication: PULMONARY TUBERCULOSIS
     Route: 065
  5. PYRAZINAMIDE [Suspect]
     Indication: PULMONARY TUBERCULOSIS
     Route: 065
  6. ISONIAZID [Suspect]
     Route: 065

REACTIONS (5)
  - SERUM FERRITIN INCREASED [None]
  - PORPHYRIA NON-ACUTE [None]
  - DERMATITIS BULLOUS [None]
  - PORPHYRINS URINE INCREASED [None]
  - HAEMOGLOBIN DECREASED [None]
